FAERS Safety Report 6259327-3 (Version None)
Quarter: 2009Q3

REPORT INFORMATION
  Report Type: 
  Country: None (occurrence: None)
  Receive Date: 20090702
  Receipt Date: 20090617
  Transmission Date: 20100115
  Serious: Yes (Other)
  Sender: FDA-Public Use
  Company Number: 2008AL011794

PATIENT
  Age: 39 Year
  Sex: Female

DRUGS (3)
  1. DIGOXIN [Suspect]
     Dosage: 0.25MG, DAILY, PO
     Route: 048
  2. TOPROL-XL [Concomitant]
  3. LISINOPRIL [Concomitant]

REACTIONS (15)
  - ABDOMINAL PAIN [None]
  - ASTHENIA [None]
  - CHEST PAIN [None]
  - COUGH [None]
  - DECREASED ACTIVITY [None]
  - DYSPNOEA [None]
  - ECONOMIC PROBLEM [None]
  - EMOTIONAL DISTRESS [None]
  - INJURY [None]
  - NEPHROLITHIASIS [None]
  - PAIN [None]
  - PROCTALGIA [None]
  - PROTEIN URINE PRESENT [None]
  - RECTAL HAEMORRHAGE [None]
  - UNEMPLOYMENT [None]
